FAERS Safety Report 8410302-X (Version None)
Quarter: 2012Q2

REPORT INFORMATION
  Report Type: 
  Country: None (occurrence: None)
  Receive Date: 20120605
  Receipt Date: 20120531
  Transmission Date: 20120825
  Serious: Yes (Hospitalization)
  Sender: FDA-Public Use
  Company Number: PHEH2012US010051

PATIENT
  Sex: Female

DRUGS (13)
  1. LASIX [Concomitant]
  2. VERAPAMIL HCL [Concomitant]
  3. ZYLOPRIM [Concomitant]
  4. LOPRESSOR [Concomitant]
  5. TASIGNA [Suspect]
     Indication: CHRONIC MYELOID LEUKAEMIA
     Dosage: 400 MG, BID
     Route: 048
     Dates: start: 20120414
  6. DIGOXIN [Concomitant]
  7. FERROUS FUMARATE [Concomitant]
  8. ASPIRIN [Concomitant]
  9. CARDIZEM [Concomitant]
  10. RYTHMOL [Concomitant]
  11. ZOCOR [Concomitant]
  12. GABAPENTIN [Concomitant]
  13. PEPCID [Concomitant]

REACTIONS (6)
  - CHEST PAIN [None]
  - CARDIAC FAILURE CHRONIC [None]
  - BLOOD PRESSURE INADEQUATELY CONTROLLED [None]
  - DYSPNOEA [None]
  - PNEUMONIA [None]
  - CARDIAC DISORDER [None]
